FAERS Safety Report 9516182 (Version 1)
Quarter: 2013Q1

REPORT INFORMATION
  Report Type: Spontaneous
  Country: US (occurrence: None)
  Receive Date: 20130305
  Receipt Date: 20130305
  Transmission Date: 20140127
  Serious: Yes (Other)
  Sender: FDA-Public Use
  Company Number: 163-21880-12080921

PATIENT
  Age: 76 Year
  Sex: Male

DRUGS (4)
  1. REVLIMID (LENALIDOMIDE) (CAPSULES) [Suspect]
     Indication: PLASMA CELL MYELOMA
     Dosage: 15 MG, 14 IN 14 D, PO
     Route: 048
     Dates: start: 20081217
  2. ARICEPT (DONEPEZIL HYDROCHLORIDE) [Concomitant]
  3. LACTAID (TILACTASE) [Concomitant]
  4. PROBIOTIC ENZYMES (OTHER THERAPEUTIC PRODUCTS) [Concomitant]

REACTIONS (1)
  - Diarrhoea [None]
